FAERS Safety Report 6654403-5 (Version None)
Quarter: 2010Q1

REPORT INFORMATION
  Report Type: 
  Country: None (occurrence: None)
  Receive Date: 20100326
  Receipt Date: 20100317
  Transmission Date: 20100710
  Serious: Yes (Other)
  Sender: FDA-Public Use
  Company Number: JP-PFIZER INC-2010034659

PATIENT
  Age: 63 Year
  Sex: Male

DRUGS (5)
  1. NORVASC [Suspect]
     Indication: HYPERTENSION
     Dosage: 5 MG, 1X/DAY
     Route: 048
     Dates: start: 20100216, end: 20100316
  2. PLAVIX [Concomitant]
     Indication: CEREBRAL ARTERY EMBOLISM
     Dosage: 75 MG/DAY
     Route: 048
     Dates: start: 20090101, end: 20100316
  3. CANDESARTAN CILEXETIL [Concomitant]
     Indication: CEREBRAL ARTERY EMBOLISM
     Dosage: 12 MG/DAY
     Route: 048
     Dates: start: 20090101, end: 20100316
  4. MELBIN [Concomitant]
     Route: 048
  5. EUGLUCON [Concomitant]
     Route: 048

REACTIONS (1)
  - BLOOD CREATINE PHOSPHOKINASE INCREASED [None]
